FAERS Safety Report 4795231-5 (Version None)
Quarter: 2005Q3

REPORT INFORMATION
  Report Type: 
  Country: None (occurrence: None)
  Receive Date: 20050916
  Receipt Date: 20050112
  Transmission Date: 20060218
  Serious: Yes (Other)
  Sender: FDA-Public Use
  Company Number: GB-JNJFOC-20040809230

PATIENT
  Age: 18 Year
  Sex: Male

DRUGS (1)
  1. TOPAMAX [Suspect]
     Dosage: 200 UG, 2 IN 1 DAY, ORAL
     Route: 048

REACTIONS (4)
  - AMNESIA [None]
  - DISSOCIATIVE DISORDER [None]
  - HALLUCINATION [None]
  - PANIC ATTACK [None]
